FAERS Safety Report 10485869 (Version 1)
Quarter: 2014Q4

REPORT INFORMATION
  Report Type: Spontaneous
  Country: US (occurrence: US)
  Receive Date: 20141001
  Receipt Date: 20141001
  Transmission Date: 20150528
  Serious: No
  Sender: FDA-Public Use
  Company Number: US-BIOGENIDEC-2014BI099029

PATIENT
  Age: 38 Year
  Sex: Female

DRUGS (10)
  1. KLONOPIN [Concomitant]
     Active Substance: CLONAZEPAM
  2. PROMETHAZINE [Concomitant]
     Active Substance: PROMETHAZINE\PROMETHAZINE HYDROCHLORIDE
  3. THORAZINE [Concomitant]
     Active Substance: CHLORPROMAZINE
  4. VITAMIN D [Concomitant]
     Active Substance: CHOLECALCIFEROL
  5. XANAX [Concomitant]
     Active Substance: ALPRAZOLAM
  6. NYSTATIN. [Concomitant]
     Active Substance: NYSTATIN
  7. PROCTOSOL [Concomitant]
  8. ESTRACE [Concomitant]
     Active Substance: ESTRADIOL
  9. METHADONE [Concomitant]
     Active Substance: METHADONE HYDROCHLORIDE
  10. TECFIDERA [Suspect]
     Active Substance: DIMETHYL FUMARATE
     Indication: MULTIPLE SCLEROSIS
     Route: 048

REACTIONS (6)
  - Rash [Unknown]
  - Flushing [Unknown]
  - Thirst [Unknown]
  - Hyperhidrosis [Unknown]
  - Erythema [Unknown]
  - Photosensitivity reaction [Unknown]
